FAERS Safety Report 24650040 (Version 2)
Quarter: 2025Q3

REPORT INFORMATION
  Report Type: Spontaneous
  Country: EU (occurrence: EU)
  Receive Date: 20241122
  Receipt Date: 20250802
  Transmission Date: 20251021
  Serious: Yes (Hospitalization, Other)
  Sender: ALEXION PHARMACEUTICALS
  Company Number: EU-AstraZeneca-CH-00750856A

PATIENT
  Sex: Male

DRUGS (1)
  1. DURVALUMAB [Suspect]
     Active Substance: DURVALUMAB
     Indication: Product used for unknown indication
     Dates: start: 202409, end: 202410

REACTIONS (2)
  - Toxic epidermal necrolysis [Unknown]
  - Off label use [Unknown]

NARRATIVE: CASE EVENT DATE: 20241001
